FAERS Safety Report 7111751-2 (Version None)
Quarter: 2010Q4

REPORT INFORMATION
  Report Type: 
  Country: None (occurrence: None)
  Receive Date: 20101118
  Receipt Date: 20101006
  Transmission Date: 20110411
  Serious: Yes (Other)
  Sender: FDA-Public Use
  Company Number: GB-AMGEN-GBRSP2010000231

PATIENT

DRUGS (2)
  1. NEULASTA [Suspect]
     Indication: CHEMOTHERAPY
  2. BLEOMYCIN SULFATE [Suspect]

REACTIONS (3)
  - DRUG INTERACTION [None]
  - PULMONARY FIBROSIS [None]
  - PULMONARY TOXICITY [None]
